FAERS Safety Report 17620899 (Version 3)
Quarter: 2020Q2

REPORT INFORMATION
  Report Type: Spontaneous
  Country: JP (occurrence: JP)
  Receive Date: 20200403
  Receipt Date: 20200422
  Transmission Date: 20200713
  Serious: Yes (Other)
  Sender: FDA-Public Use
  Company Number: JP-PFIZER INC-2020138012

PATIENT
  Age: 84 Year
  Sex: Female

DRUGS (10)
  1. PROGRAF [Suspect]
     Active Substance: TACROLIMUS
     Indication: MYASTHENIA GRAVIS
     Dosage: 2 MG, 1X/DAY
     Route: 048
  2. DRAMAMINE [Concomitant]
     Active Substance: DIMENHYDRINATE
     Dosage: 50 MG/DAY, UNKNOWN FREQ.
     Route: 065
  3. AMLODIPINE [AMLODIPINE BESILATE] [Concomitant]
     Active Substance: AMLODIPINE BESYLATE
     Dosage: UNK
     Route: 065
     Dates: start: 202003
  4. NEUROTROPIN [RABBIT VACCINIA EXTRACT] [Concomitant]
     Active Substance: ORYCTOLAGUS CUNICULUS SKIN
     Dosage: UNK
     Route: 065
     Dates: start: 202003
  5. TAKECAB [Concomitant]
     Active Substance: VONOPRAZAN FUMARATE
     Dosage: UNK
     Route: 065
     Dates: start: 202003
  6. AMLODIPINE BESILATE/TELMISARTAN [Suspect]
     Active Substance: AMLODIPINE\TELMISARTAN
     Dosage: UNK
     Route: 065
  7. LANSOPRAZOLE. [Suspect]
     Active Substance: LANSOPRAZOLE
     Dosage: UNK
     Route: 065
  8. BAKTAR [Suspect]
     Active Substance: SULFAMETHOXAZOLE\TRIMETHOPRIM
     Dosage: UNK
     Route: 065
  9. DRAMAMINE [Concomitant]
     Active Substance: DIMENHYDRINATE
     Dosage: 100 MG/DAY, UNKNOWN FREQ.
     Route: 065
  10. CELECOX [Suspect]
     Active Substance: CELECOXIB
     Indication: FRACTURE
     Dosage: 100 MG, 1X/DAY
     Route: 048

REACTIONS (2)
  - Prescribed underdose [Unknown]
  - Interstitial lung disease [Unknown]
